FAERS Safety Report 23712437 (Version 1)
Quarter: 2024Q2

REPORT INFORMATION
  Report Type: Report from Study
  Country: ES (occurrence: ES)
  Receive Date: 20240405
  Receipt Date: 20240405
  Transmission Date: 20240716
  Serious: Yes (Other)
  Sender: FDA-Public Use
  Company Number: ES-BEH-2024170326

PATIENT

DRUGS (3)
  1. ALBUMIN HUMAN [Suspect]
     Active Substance: ALBUMIN HUMAN
     Indication: Acute kidney injury
     Dosage: 380 G
     Route: 065
  2. ALBUMIN HUMAN [Suspect]
     Active Substance: ALBUMIN HUMAN
     Indication: Hepatorenal syndrome
  3. TERLIPRESSIN [Suspect]
     Active Substance: TERLIPRESSIN
     Dosage: 8 MG, QD
     Route: 065

REACTIONS (1)
  - Pulmonary oedema [Unknown]
